FAERS Safety Report 11327882 (Version 1)
Quarter: 2015Q3

REPORT INFORMATION
  Report Type: Spontaneous
  Country: KR (occurrence: KR)
  Receive Date: 20150731
  Receipt Date: 20150731
  Transmission Date: 20151125
  Serious: Yes (Hospitalization)
  Sender: FDA-Public Use
  Company Number: KR-AMGEN-KORCT2015077624

PATIENT
  Age: 29 Year
  Sex: Male

DRUGS (6)
  1. CISPLATIN. [Concomitant]
     Active Substance: CISPLATIN
     Indication: SEMINOMA
     Dosage: 37 MG, UNK
     Route: 042
     Dates: start: 20150706, end: 20150710
  2. MACPERAN [Concomitant]
     Dosage: 15 MG, UNK
     Route: 048
     Dates: start: 20150711, end: 20150715
  3. ETOPOSIDE. [Concomitant]
     Active Substance: ETOPOSIDE
     Indication: SEMINOMA
     Dosage: 185 MG, UNK
     Route: 042
     Dates: start: 20150706, end: 20150706
  4. G-LASTA [Suspect]
     Active Substance: PEGFILGRASTIM
     Indication: FEBRILE NEUTROPENIA
     Dosage: 6 MG, 1X/WEEK
     Route: 058
     Dates: start: 20150711, end: 20150711
  5. MACPERAN [Concomitant]
     Dosage: 30 MG, UNK
     Route: 042
     Dates: start: 20150708, end: 20150710
  6. BLEOMYCIN [Suspect]
     Active Substance: BLEOMYCIN SULFATE
     Indication: SEMINOMA
     Dosage: 30 MG, UNK
     Route: 042
     Dates: start: 20150706, end: 20150710

REACTIONS (1)
  - Pyrexia [Recovered/Resolved]

NARRATIVE: CASE EVENT DATE: 20150713
